FAERS Safety Report 23244471 (Version 1)
Quarter: 2023Q4

REPORT INFORMATION
  Report Type: Spontaneous
  Country: US (occurrence: US)
  Receive Date: 20231130
  Receipt Date: 20231130
  Transmission Date: 20240109
  Serious: No
  Sender: FDA-Public Use
  Company Number: US-APOTEX-2023AP016393

PATIENT
  Age: 57 Year
  Sex: Female

DRUGS (3)
  1. DASATINIB [Suspect]
     Active Substance: DASATINIB
     Indication: Systemic mastocytosis
     Dosage: 100 MILLIGRAM, QD
     Route: 048
  2. MIDOSTAURIN [Suspect]
     Active Substance: MIDOSTAURIN
     Indication: Systemic mastocytosis
     Dosage: 25 MILLIGRAM, BID
     Route: 048
  3. HYDROXYUREA [Suspect]
     Active Substance: HYDROXYUREA
     Indication: Myeloproliferative neoplasm
     Dosage: 500 MILLIGRAM, QD
     Route: 048

REACTIONS (3)
  - Gastrointestinal disorder [Unknown]
  - Back pain [Unknown]
  - Headache [Unknown]
